FAERS Safety Report 13271444 (Version 3)
Quarter: 2020Q2

REPORT INFORMATION
  Report Type: Spontaneous
  Country: US (occurrence: US)
  Receive Date: 20170227
  Receipt Date: 20200427
  Transmission Date: 20200713
  Serious: No
  Sender: FDA-Public Use
  Company Number: US-LUNDBECK-DKLU2024314

PATIENT
  Age: 83 Year
  Sex: Female

DRUGS (5)
  1. NORTHERA [Suspect]
     Active Substance: DROXIDOPA
     Indication: AUTONOMIC NEUROPATHY
     Dosage: 300 MG AND 200 MG TO MAKE UP 1300 MG TID IN DIVIDED DOSES
     Route: 048
     Dates: start: 20160727
  2. NORTHERA [Suspect]
     Active Substance: DROXIDOPA
     Indication: ORTHOSTATIC HYPOTENSION
     Dosage: 300 MG AND 200 MG TO MAKE UP 1300 MG TID IN DIVIDED DOSES
     Route: 048
     Dates: start: 20160727
  3. NORTHERA [Suspect]
     Active Substance: DROXIDOPA
     Route: 048
     Dates: start: 20160715
  4. NORTHERA [Suspect]
     Active Substance: DROXIDOPA
     Dosage: TITRATION COMPLETED
     Route: 048
     Dates: start: 20150116
  5. NORTHERA [Suspect]
     Active Substance: DROXIDOPA
     Route: 048
     Dates: start: 20160715

REACTIONS (3)
  - Muscle spasms [Unknown]
  - Therapy change [Unknown]
  - Pruritus [Unknown]

NARRATIVE: CASE EVENT DATE: 20200422
